FAERS Safety Report 9624830 (Version 3)
Quarter: 2014Q1

REPORT INFORMATION
  Report Type: Spontaneous
  Country: US (occurrence: US)
  Receive Date: 20131015
  Receipt Date: 20140124
  Transmission Date: 20141002
  Serious: No
  Sender: FDA-Public Use
  Company Number: US-009507513-1310USA005085

PATIENT
  Age: 17 Year
  Sex: Female

DRUGS (1)
  1. IMPLANON [Suspect]
     Dosage: SINGLE STANDARD DOSE
     Route: 059
     Dates: start: 201103, end: 20131114

REACTIONS (5)
  - Haemorrhage [Unknown]
  - Weight increased [Unknown]
  - Device dislocation [Recovered/Resolved]
  - Device deployment issue [Recovered/Resolved]
  - Device difficult to use [Recovered/Resolved]
